FAERS Safety Report 4826212-0 (Version None)
Quarter: 2005Q4

REPORT INFORMATION
  Report Type: 
  Country: None (occurrence: None)
  Receive Date: 20051111
  Receipt Date: 20050824
  Transmission Date: 20060501
  Serious: Yes (Hospitalization)
  Sender: FDA-Public Use
  Company Number: 2005UW12613

PATIENT
  Age: 27 Year
  Sex: Male
  Weight: 88.9 kg

DRUGS (4)
  1. CRESTOR [Suspect]
     Indication: BLOOD CHOLESTEROL INCREASED
     Route: 048
     Dates: start: 20041201, end: 20050711
  2. MULTI-VITAMIN [Concomitant]
     Dates: end: 20050711
  3. FISH OIL [Concomitant]
  4. GARLIC [Concomitant]

REACTIONS (13)
  - ASTHENIA [None]
  - BLOOD CREATINE PHOSPHOKINASE INCREASED [None]
  - BLOOD URINE PRESENT [None]
  - CHEST PAIN [None]
  - CYSTITIS NONINFECTIVE [None]
  - DRUG HYPERSENSITIVITY [None]
  - GASTRITIS [None]
  - HYPERSENSITIVITY [None]
  - MYALGIA [None]
  - MYOPATHY [None]
  - PAIN [None]
  - URINE KETONE BODY PRESENT [None]
  - WEIGHT DECREASED [None]
